FAERS Safety Report 4852921-3 (Version None)
Quarter: 2005Q4

REPORT INFORMATION
  Report Type: 
  Country: None (occurrence: None)
  Receive Date: 20051212
  Receipt Date: 20051212
  Transmission Date: 20060501
  Serious: Yes (Hospitalization, Other)
  Sender: FDA-Public Use
  Company Number: None

PATIENT
  Sex: Male
  Weight: 105 kg

DRUGS (5)
  1. FLUOROURACIL [Suspect]
     Indication: RECTAL CANCER
     Dosage: SEE IMAGE
     Dates: start: 20051115, end: 20051117
  2. FLUOROURACIL [Suspect]
     Indication: RECTAL CANCER
     Dosage: SEE IMAGE
     Dates: start: 20051115
  3. XELODA [Suspect]
     Dosage: SEE IMAGE
  4. LEUCOVORIN CALCIUM [Suspect]
     Dosage: SEE IMAGE
     Dates: start: 20051115, end: 20051115
  5. ELOXATIN [Suspect]
     Dosage: SEE IMAGE
     Dates: start: 20051115, end: 20051115

REACTIONS (1)
  - DEEP VEIN THROMBOSIS [None]
